FAERS Safety Report 21241700 (Version 1)
Quarter: 2022Q3

REPORT INFORMATION
  Report Type: Report from Study
  Country: US (occurrence: US)
  Receive Date: 20220823
  Receipt Date: 20220823
  Transmission Date: 20221026
  Serious: Yes (Hospitalization, Other)
  Sender: FDA-Public Use
  Company Number: US-GILEAD-2022-0594095

PATIENT
  Sex: Male

DRUGS (11)
  1. AZTREONAM LYSINE [Suspect]
     Active Substance: AZTREONAM LYSINE
     Indication: Bacterial disease carrier
     Dosage: 75 MG, TID EVERY OTHER MONTH, ALTERNATE WITH COLISTIN
     Route: 055
  2. KLONOPIN [Concomitant]
     Active Substance: CLONAZEPAM
  3. GAS-X [Concomitant]
     Active Substance: DIMETHICONE
  4. LAMICTAL [Concomitant]
     Active Substance: LAMOTRIGINE
  5. ALBUTEROL SULFATE [Concomitant]
     Active Substance: ALBUTEROL SULFATE
  6. BENADRYL [Concomitant]
     Active Substance: DIPHENHYDRAMINE HYDROCHLORIDE
  7. AZELASTINE [Concomitant]
     Active Substance: AZELASTINE
  8. ERYTHROMYCIN [Concomitant]
     Active Substance: ERYTHROMYCIN
  9. COLISTIN [Concomitant]
     Active Substance: COLISTIN
  10. BENTYL [Concomitant]
     Active Substance: DICYCLOMINE HYDROCHLORIDE
  11. PREVACID [Concomitant]
     Active Substance: LANSOPRAZOLE

REACTIONS (2)
  - Mechanical ventilation [Unknown]
  - Off label use [Not Recovered/Not Resolved]
